FAERS Safety Report 5678272-5 (Version None)
Quarter: 2008Q1

REPORT INFORMATION
  Report Type: 
  Country: None (occurrence: None)
  Receive Date: 20080324
  Receipt Date: 20080324
  Transmission Date: 20080703
  Serious: Yes (Hospitalization)
  Sender: FDA-Public Use
  Company Number: None

PATIENT
  Age: 15 Year
  Sex: Female
  Weight: 89.8122 kg

DRUGS (1)
  1. METFORMIN HCL [Suspect]

REACTIONS (10)
  - ALOPECIA [None]
  - CRYING [None]
  - EYE SWELLING [None]
  - PAIN [None]
  - PURULENT DISCHARGE [None]
  - RASH PAPULAR [None]
  - RASH PRURITIC [None]
  - SCAB [None]
  - SCAR [None]
  - SKIN HAEMORRHAGE [None]
